FAERS Safety Report 5636814-X (Version None)
Quarter: 2008Q1

REPORT INFORMATION
  Report Type: 
  Country: None (occurrence: None)
  Receive Date: 20080220
  Receipt Date: 20080220
  Transmission Date: 20080703
  Serious: Yes (Life-Threatening, Hospitalization)
  Sender: FDA-Public Use
  Company Number: None

PATIENT
  Sex: Female
  Weight: 56.6996 kg

DRUGS (1)
  1. KETEK [Suspect]
     Indication: SINUSITIS
     Dosage: QD PO
     Route: 048
     Dates: start: 20050217, end: 20050221

REACTIONS (4)
  - ATAXIA [None]
  - MUSCULAR WEAKNESS [None]
  - VISUAL DISTURBANCE [None]
  - VOMITING [None]
